FAERS Safety Report 17506661 (Version 2)
Quarter: 2020Q1

REPORT INFORMATION
  Report Type: Spontaneous
  Country: US (occurrence: US)
  Receive Date: 20200306
  Receipt Date: 20200326
  Transmission Date: 20200409
  Serious: Yes (Other)
  Sender: FDA-Public Use
  Company Number: NVSC2020US057537

PATIENT
  Sex: Female

DRUGS (5)
  1. BEOVU [Suspect]
     Active Substance: BROLUCIZUMAB-DBLL
     Dosage: 0.5 ML, UNKNOWN (LEFT)
     Route: 065
     Dates: start: 20191205
  2. BEOVU [Suspect]
     Active Substance: BROLUCIZUMAB-DBLL
     Dosage: 0.5 ML, UNKNOWN
     Route: 065
     Dates: start: 20200117
  3. BEOVU [Suspect]
     Active Substance: BROLUCIZUMAB-DBLL
     Dosage: 0.5 ML, UNKNOWN (RIGHT)
     Route: 031
     Dates: start: 20200107
  4. BEOVU [Suspect]
     Active Substance: BROLUCIZUMAB-DBLL
     Dosage: UNK
     Route: 065
  5. BEOVU [Suspect]
     Active Substance: BROLUCIZUMAB-DBLL
     Indication: AGE-RELATED MACULAR DEGENERATION
     Dosage: 6 MG/KG, QMO (INTO EYES)
     Route: 047

REACTIONS (4)
  - Iridocyclitis [Recovering/Resolving]
  - Vitreous floaters [Unknown]
  - Chorioretinitis [Recovering/Resolving]
  - Skin discolouration [Unknown]
